FAERS Safety Report 9187166 (Version 2)
Quarter: 2013Q2

REPORT INFORMATION
  Report Type: Report from Study
  Country: US (occurrence: US)
  Receive Date: 20130325
  Receipt Date: 20130410
  Transmission Date: 20140414
  Serious: Yes (Other)
  Sender: FDA-Public Use
  Company Number: US-ROCHE-1202285

PATIENT
  Sex: Female

DRUGS (9)
  1. VISMODEGIB [Suspect]
     Indication: BASAL CELL NAEVUS SYNDROME
     Dosage: DOSING INFORMATION AS PER PROTOCOL.
     Route: 048
     Dates: start: 20110318, end: 20120115
  2. BACTRIM [Concomitant]
     Indication: URINARY TRACT INFECTION
  3. TYLENOL [Concomitant]
  4. AMBIEN [Concomitant]
  5. ELAVIL [Concomitant]
  6. NEURONTIN [Concomitant]
  7. ACYCLOVIR [Concomitant]
  8. ZYRTEC [Concomitant]
  9. PLACEBO [Suspect]
     Indication: BASAL CELL NAEVUS SYNDROME
     Dosage: DOSING INFORMATION AS PER PROTOCOL.
     Route: 048

REACTIONS (2)
  - Alopecia [Not Recovered/Not Resolved]
  - Drug level increased [Not Recovered/Not Resolved]
